FAERS Safety Report 9409448 (Version 2)
Quarter: 2013Q3

REPORT INFORMATION
  Report Type: Report from Study
  Country: ES (occurrence: ES)
  Receive Date: 20130719
  Receipt Date: 20130725
  Transmission Date: 20140515
  Serious: Yes (Other)
  Sender: FDA-Public Use
  Company Number: ES-COVIDIEN/TYCO HEALTHCARE/MALLINCKRODT-T201303741

PATIENT
  Age: 65 Year
  Sex: Male
  Weight: 71 kg

DRUGS (14)
  1. OPTIRAY 320 [Suspect]
     Indication: ARTERIOGRAM CORONARY
     Dosage: 70 ML, SINGLE
     Route: 042
     Dates: start: 20120217, end: 20120217
  2. DOTAREM /01095302/ [Suspect]
     Indication: NUCLEAR MAGNETIC RESONANCE IMAGING
     Dosage: 15 ML, SINGLE
     Route: 042
     Dates: start: 20120214, end: 20120214
  3. CELLCEPT                           /01275102/ [Concomitant]
     Indication: PRODUCT USED FOR UNKNOWN INDICATION
  4. ADVAGRAF [Concomitant]
  5. DEZACOR [Concomitant]
  6. PLUSVENT [Concomitant]
  7. ACETYLSALICYLIC ACID [Concomitant]
  8. JANUVIA [Concomitant]
  9. ATORVASTATIN [Concomitant]
  10. ALLOPURINOL [Concomitant]
  11. VATOUD [Concomitant]
  12. BISOPROLOL [Concomitant]
  13. AMLODIPINE [Concomitant]
  14. NITRODERM [Concomitant]

REACTIONS (1)
  - Renal failure [Recovered/Resolved]
